FAERS Safety Report 18549421 (Version 16)
Quarter: 2021Q3

REPORT INFORMATION
  Report Type: Report from Study
  Country: CA (occurrence: CA)
  Receive Date: 20201126
  Receipt Date: 20210916
  Transmission Date: 20211014
  Serious: Yes (Hospitalization, Disabling)
  Sender: FDA-Public Use
  Company Number: CA-IPSEN BIOPHARMACEUTICALS, INC.-2020-21202

PATIENT
  Age: 69 Year
  Sex: Female

DRUGS (11)
  1. IRON [Concomitant]
     Active Substance: IRON
  2. ANASTROZOLE. [Concomitant]
     Active Substance: ANASTROZOLE
  3. METFORMIN [Concomitant]
     Active Substance: METFORMIN HYDROCHLORIDE
  4. PANTOPRAZOLE [Concomitant]
     Active Substance: PANTOPRAZOLE
  5. AMLODIPINE [Concomitant]
     Active Substance: AMLODIPINE BESYLATE
  6. CALCIUM [Concomitant]
     Active Substance: CALCIUM
  7. VITAMIN [Concomitant]
     Active Substance: VITAMINS
  8. HALDOL [Concomitant]
     Active Substance: HALOPERIDOL
  9. ATORVASTATIN [Concomitant]
     Active Substance: ATORVASTATIN
  10. SOMATULINE AUTOGEL [Suspect]
     Active Substance: LANREOTIDE ACETATE
     Indication: CARCINOID SYNDROME
     Route: 058
     Dates: start: 20191107
  11. INDOPRIL [Concomitant]
     Active Substance: PERINDOPRIL ERBUMINE

REACTIONS (10)
  - Mental disorder [Unknown]
  - Blood glucose increased [Recovered/Resolved]
  - Off label use [Unknown]
  - Flushing [Not Recovered/Not Resolved]
  - Blood glucose fluctuation [Unknown]
  - Blood glucose abnormal [Not Recovered/Not Resolved]
  - Flushing [Recovered/Resolved]
  - Inappropriate schedule of product administration [Unknown]
  - Abdominal pain [Recovered/Resolved]
  - Hypoglycaemia [Recovered/Resolved]

NARRATIVE: CASE EVENT DATE: 20191107
